FAERS Safety Report 16791068 (Version 1)
Quarter: 2019Q3

REPORT INFORMATION
  Report Type: Spontaneous
  Country: US (occurrence: US)
  Receive Date: 20190910
  Receipt Date: 20190910
  Transmission Date: 20191005
  Serious: No
  Sender: FDA-Public Use
  Company Number: US-BAYER-2019-156440

PATIENT

DRUGS (1)
  1. ALEVE [Suspect]
     Active Substance: NAPROXEN SODIUM

REACTIONS (5)
  - Dyspepsia [Recovered/Resolved]
  - Gastric disorder [Unknown]
  - Gastrointestinal tract irritation [Recovered/Resolved]
  - Diarrhoea [Recovered/Resolved]
  - Gastric pH decreased [Recovered/Resolved]
